FAERS Safety Report 7436843-X (Version None)
Quarter: 2011Q2

REPORT INFORMATION
  Report Type: 
  Country: None (occurrence: None)
  Receive Date: 20110426
  Receipt Date: 20110420
  Transmission Date: 20111010
  Serious: No
  Sender: FDA-Public Use
  Company Number: US-PFIZER INC-2011087492

PATIENT
  Sex: Female
  Weight: 52.154 kg

DRUGS (1)
  1. DETROL LA [Suspect]
     Dosage: 4 MG, 1X/DAY
     Route: 048

REACTIONS (2)
  - URINARY INCONTINENCE [None]
  - NOCTURIA [None]
